FAERS Safety Report 8013250-2 (Version None)
Quarter: 2011Q4

REPORT INFORMATION
  Report Type: 
  Country: None (occurrence: None)
  Receive Date: 20111229
  Receipt Date: 20111229
  Transmission Date: 20120403
  Serious: Yes (Life-Threatening, Other)
  Sender: FDA-Public Use
  Company Number: None

PATIENT
  Age: 20 Year
  Sex: Female
  Weight: 45.359 kg

DRUGS (2)
  1. CELEBREX [Suspect]
     Indication: PAIN
     Dosage: 1
     Route: 048
  2. LYRICA [Concomitant]
     Dosage: 1
     Route: 048

REACTIONS (3)
  - FATIGUE [None]
  - HAEMATOCHEZIA [None]
  - ABDOMINAL PAIN UPPER [None]
